FAERS Safety Report 5984513-7 (Version None)
Quarter: 2008Q4

REPORT INFORMATION
  Report Type: 
  Country: None (occurrence: None)
  Receive Date: 20081208
  Receipt Date: 20080819
  Transmission Date: 20090506
  Serious: No
  Sender: FDA-Public Use
  Company Number: US-AMGEN-KDL302485

PATIENT
  Sex: Male

DRUGS (2)
  1. ENBREL [Suspect]
     Indication: REITER'S SYNDROME
     Route: 058
  2. METHOTREXATE [Concomitant]

REACTIONS (4)
  - ACNE [None]
  - HEADACHE [None]
  - MEMORY IMPAIRMENT [None]
  - PRURITUS GENERALISED [None]
